FAERS Safety Report 21162348 (Version 1)
Quarter: 2022Q3

REPORT INFORMATION
  Report Type: Spontaneous
  Country: US (occurrence: US)
  Receive Date: 20220802
  Receipt Date: 20220802
  Transmission Date: 20221026
  Serious: No
  Sender: FDA-Public Use
  Company Number: US-PFIZER INC-202201014725

PATIENT
  Sex: Male

DRUGS (2)
  1. PAXLOVID [Interacting]
     Active Substance: NIRMATRELVIR\RITONAVIR
     Indication: COVID-19 treatment
     Dosage: UNK
  2. CLONAZEPAM [Interacting]
     Active Substance: CLONAZEPAM
     Dosage: UNK

REACTIONS (3)
  - Drug interaction [Unknown]
  - Anxiety [Unknown]
  - Disturbance in attention [Unknown]
